FAERS Safety Report 13817242 (Version 2)
Quarter: 2017Q3

REPORT INFORMATION
  Report Type: Spontaneous
  Country: NL (occurrence: NL)
  Receive Date: 20170731
  Receipt Date: 20170811
  Transmission Date: 20171127
  Serious: Yes (Hospitalization, Other)
  Sender: FDA-Public Use
  Company Number: NL-PFIZER INC-2017330240

PATIENT
  Age: 69 Year
  Sex: Female
  Weight: 54 kg

DRUGS (1)
  1. CELECOXIB. [Suspect]
     Active Substance: CELECOXIB
     Indication: ARTHROPATHY
     Dosage: 200MG ONCE A DAY
     Route: 048
     Dates: start: 20170719, end: 20170721

REACTIONS (3)
  - Syncope [Recovering/Resolving]
  - Atrioventricular block [Recovering/Resolving]
  - Loss of consciousness [Recovering/Resolving]

NARRATIVE: CASE EVENT DATE: 20170720
